FAERS Safety Report 9664624 (Version 3)
Quarter: 2014Q1

REPORT INFORMATION
  Report Type: Spontaneous
  Country: IT (occurrence: IT)
  Receive Date: 20131101
  Receipt Date: 20140109
  Transmission Date: 20141002
  Serious: Yes (Hospitalization)
  Sender: FDA-Public Use
  Company Number: IT-B.I. PHARMACEUTICALS,INC./RIDGEFIELD-2013-BI-34920IT

PATIENT
  Age: 64 Year
  Sex: Male

DRUGS (4)
  1. JENTADUETO [Suspect]
     Indication: DIABETES MELLITUS
     Dosage: DOSE PER APPLICATION: 1000MG/2.5MG DAILY DOSE:1000MG/2.5MGX2
     Route: 048
     Dates: start: 20130821, end: 20131004
  2. JENTADUETO [Suspect]
     Dosage: 5 MG
  3. GLICLAZIDE [Concomitant]
     Indication: DIABETES MELLITUS
     Dosage: 120 MG
     Route: 048
     Dates: start: 2007
  4. GLICLAZIDE [Concomitant]
     Dosage: 120 MG
     Route: 048
     Dates: start: 2007

REACTIONS (2)
  - Abdominal pain upper [Not Recovered/Not Resolved]
  - Amylase increased [Not Recovered/Not Resolved]
